FAERS Safety Report 17703416 (Version 5)
Quarter: 2020Q4

REPORT INFORMATION
  Report Type: Report from Study
  Country: None (occurrence: US)
  Receive Date: 20200423
  Receipt Date: 20201114
  Transmission Date: 20210113
  Serious: Yes (Other)
  Sender: FDA-Public Use
  Company Number: US-ABBVIE-20K-163-3314450-00

PATIENT
  Age: 56 Year
  Sex: Male

DRUGS (3)
  1. HUMIRA [Suspect]
     Active Substance: ADALIMUMAB
     Indication: PSORIASIS
  2. CELEBREX [Suspect]
     Active Substance: CELECOXIB
     Indication: PRODUCT USED FOR UNKNOWN INDICATION
     Route: 058
  3. HUMIRA [Suspect]
     Active Substance: ADALIMUMAB
     Indication: PSORIATIC ARTHROPATHY
     Route: 058
     Dates: start: 20200210, end: 2020

REACTIONS (49)
  - Eye operation [Unknown]
  - Neuropathy peripheral [Not Recovered/Not Resolved]
  - Fatigue [Unknown]
  - Decreased appetite [Unknown]
  - Malnutrition [Unknown]
  - Spinal disorder [Unknown]
  - Musculoskeletal stiffness [Unknown]
  - Chest discomfort [Unknown]
  - Procedural pain [Unknown]
  - Gallbladder disorder [Unknown]
  - Dyspnoea [Unknown]
  - Weight increased [Unknown]
  - Injection site erythema [Unknown]
  - Osteoarthritis [Unknown]
  - Tarsal tunnel syndrome [Unknown]
  - Muscular weakness [Unknown]
  - Tremor [Not Recovered/Not Resolved]
  - Headache [Unknown]
  - Fear of eating [Unknown]
  - Prostatomegaly [Unknown]
  - Cataract [Unknown]
  - Nephrolithiasis [Unknown]
  - Joint instability [Not Recovered/Not Resolved]
  - Foot deformity [Unknown]
  - Gait disturbance [Not Recovered/Not Resolved]
  - Chest pain [Unknown]
  - Weight decreased [Unknown]
  - Gastrooesophageal reflux disease [Unknown]
  - Musculoskeletal stiffness [Recovering/Resolving]
  - Post procedural complication [Unknown]
  - Lung disorder [Unknown]
  - Dysphagia [Unknown]
  - Pain [Unknown]
  - Dizziness [Unknown]
  - Injection site urticaria [Unknown]
  - Injection site warmth [Unknown]
  - Internal haemorrhage [Unknown]
  - Finger deformity [Unknown]
  - Loss of personal independence in daily activities [Not Recovered/Not Resolved]
  - Pain [Not Recovered/Not Resolved]
  - Hypoaesthesia [Unknown]
  - Arthritis [Unknown]
  - Abdominal pain upper [Unknown]
  - Paraesthesia [Unknown]
  - Dysphagia [Unknown]
  - Plantar fasciitis [Unknown]
  - Fatigue [Not Recovered/Not Resolved]
  - Gait disturbance [Unknown]
  - Post procedural complication [Unknown]

NARRATIVE: CASE EVENT DATE: 2020
